FAERS Safety Report 24556582 (Version 1)
Quarter: 2024Q4

REPORT INFORMATION
  Report Type: Spontaneous
  Country: US (occurrence: US)
  Receive Date: 20241028
  Receipt Date: 20241028
  Transmission Date: 20250114
  Serious: Yes (Hospitalization)
  Sender: FRESENIUS KABI
  Company Number: US-FreseniusKabi-FK202415701

PATIENT
  Age: 49 Year
  Sex: Female
  Weight: 78.47 kg

DRUGS (8)
  1. KETOROLAC TROMETHAMINE [Suspect]
     Active Substance: KETOROLAC TROMETHAMINE
     Indication: Pain
     Dosage: DOSAGE: ASKED BUT UNKNOWN
     Route: 042
     Dates: end: 20240815
  2. MORPHINE [Suspect]
     Active Substance: MORPHINE
     Indication: Abdominal pain upper
     Dosage: DOSAGE: ASKED BUT UNKNOWN
     Route: 042
     Dates: start: 202408, end: 202408
  3. BUPROPION [Concomitant]
     Active Substance: BUPROPION
     Indication: Product used for unknown indication
     Dosage: ONCE A DAY
     Route: 048
  4. OMEPRAZOLE [Concomitant]
     Active Substance: OMEPRAZOLE
     Indication: Product used for unknown indication
     Dosage: TWICE A DAY
     Route: 048
  5. TOPIRAMATE [Concomitant]
     Active Substance: TOPIRAMATE
     Indication: Product used for unknown indication
     Dosage: 2 TABLETS ORAL TWICE A DAY
     Route: 048
  6. GABAPENTIN [Concomitant]
     Active Substance: GABAPENTIN
     Indication: Product used for unknown indication
     Dosage: ORAL ONCE DAY
     Route: 048
  7. VITAMINS [Concomitant]
     Active Substance: VITAMINS
     Indication: Product used for unknown indication
     Dosage: ONCE A DAY
     Route: 048
  8. CETIRIZINE [Concomitant]
     Active Substance: CETIRIZINE HYDROCHLORIDE
     Indication: Product used for unknown indication
     Dosage: ONCE A DAY
     Route: 048

REACTIONS (4)
  - Hypersensitivity [Recovered/Resolved]
  - Amnesia [Not Recovered/Not Resolved]
  - Peripheral swelling [Recovered/Resolved]
  - Rash erythematous [Recovered/Resolved]

NARRATIVE: CASE EVENT DATE: 20240801
